FAERS Safety Report 24448047 (Version 1)
Quarter: 2024Q4

REPORT INFORMATION
  Report Type: Spontaneous
  Country: US (occurrence: US)
  Receive Date: 20241016
  Receipt Date: 20241016
  Transmission Date: 20250114
  Serious: No
  Sender: BRISTOL-MYERS SQUIBB COMPANY
  Company Number: US-BRISTOL-MYERS SQUIBB COMPANY-2024-163226

PATIENT
  Age: 73 Year
  Sex: Female
  Weight: 77.11 kg

DRUGS (1)
  1. SOTYKTU [Suspect]
     Active Substance: DEUCRAVACITINIB
     Indication: Psoriasis
     Route: 048
     Dates: start: 2024

REACTIONS (2)
  - Visual impairment [Unknown]
  - Contusion [Unknown]

NARRATIVE: CASE EVENT DATE: 20240101
